FAERS Safety Report 12821286 (Version 2)
Quarter: 2016Q4

REPORT INFORMATION
  Report Type: Spontaneous
  Country: BR (occurrence: BR)
  Receive Date: 20161007
  Receipt Date: 20161115
  Transmission Date: 20170207
  Serious: Yes (Hospitalization)
  Sender: FDA-Public Use
  Company Number: BR-009507513-1610BRA001292

PATIENT
  Age: 17 Year
  Sex: Female

DRUGS (2)
  1. GRACIAL [Suspect]
     Active Substance: DESOGESTREL\ETHINYL ESTRADIOL
     Indication: POLYCYSTIC OVARIES
  2. GRACIAL [Suspect]
     Active Substance: DESOGESTREL\ETHINYL ESTRADIOL
     Indication: SEBORRHOEA
     Dosage: 1 TABLET, QD
     Route: 048
     Dates: start: 201303, end: 201609

REACTIONS (11)
  - White blood cell count increased [Recovered/Resolved]
  - Alopecia [Not Recovered/Not Resolved]
  - Food allergy [Recovered/Resolved]
  - Red blood cell count increased [Recovered/Resolved]
  - Road traffic accident [Recovered/Resolved]
  - Product use issue [Unknown]
  - Constipation [Recovered/Resolved]
  - Weight increased [Not Recovered/Not Resolved]
  - Vascular rupture [Recovered/Resolved]
  - Iron deficiency anaemia [Not Recovered/Not Resolved]
  - Road traffic accident [Recovered/Resolved]

NARRATIVE: CASE EVENT DATE: 2013
